FAERS Safety Report 6659745-5 (Version None)
Quarter: 2010Q1

REPORT INFORMATION
  Report Type: 
  Country: None (occurrence: None)
  Receive Date: 20100325
  Receipt Date: 20100315
  Transmission Date: 20100710
  Serious: Yes (Life-Threatening, Hospitalization, Other)
  Sender: FDA-Public Use
  Company Number: 8047457

PATIENT
  Age: 64 Year
  Sex: Male

DRUGS (5)
  1. PREDNISOLONE [Suspect]
     Indication: RENAL TRANSPLANT
  2. AZATHIOPRINE [Suspect]
     Indication: RENAL TRANSPLANT
  3. BASILIXIMAB  (BASILIXIMAB) [Suspect]
     Indication: PROPHYLAXIS
  4. TACROLIMUS [Suspect]
     Indication: RENAL TRANSPLANT
  5. VALGANCICLOVIR HCL [Suspect]
     Indication: ANTIVIRAL PROPHYLAXIS
     Dosage: (ORAL)
     Route: 048

REACTIONS (8)
  - BLOOD BILIRUBIN INCREASED [None]
  - CHOLECYSTITIS ACUTE [None]
  - CYTOMEGALOVIRUS INFECTION [None]
  - GALLBLADDER NECROSIS [None]
  - HAEMOBILIA [None]
  - HEPATIC HAEMATOMA [None]
  - INTESTINAL PERFORATION [None]
  - SMALL INTESTINAL OBSTRUCTION [None]
